FAERS Safety Report 7056486-X (Version None)
Quarter: 2010Q4

REPORT INFORMATION
  Report Type: 
  Country: None (occurrence: None)
  Receive Date: 20101021
  Receipt Date: 20101013
  Transmission Date: 20110411
  Serious: Yes (Other)
  Sender: FDA-Public Use
  Company Number: US-PFIZER INC-2010130799

PATIENT
  Sex: Male
  Weight: 81.633 kg

DRUGS (9)
  1. ZOLOFT [Suspect]
     Dosage: 100 MG DAILY
     Route: 048
  2. SEROQUEL [Concomitant]
     Dosage: 100 MG, 2X/DAY
  3. LISINOPRIL [Concomitant]
     Dosage: 20 MG, 2X/DAY
  4. TOPROL-XL [Concomitant]
     Dosage: 100 MG, DAILY
  5. WARFARIN SODIUM [Concomitant]
     Dosage: 5 MG, DAILY
  6. ATIVAN [Concomitant]
     Dosage: 0.5 MG, 2X/DAY
  7. LANOXIN [Concomitant]
     Indication: CARDIAC DISORDER
     Dosage: 1.25 MG, DAILY
  8. CLONIDINE [Concomitant]
     Dosage: 0.1 MG, AS NEEDED
  9. NITROSTAT [Concomitant]
     Dosage: 0.4 MG, AS NEEDED

REACTIONS (7)
  - BLOOD PRESSURE FLUCTUATION [None]
  - CEREBROVASCULAR ACCIDENT [None]
  - CONVULSION [None]
  - DEMENTIA [None]
  - HYPERTENSION [None]
  - PARALYSIS [None]
  - POOR PERIPHERAL CIRCULATION [None]
